FAERS Safety Report 4898373-9 (Version None)
Quarter: 2006Q1

REPORT INFORMATION
  Report Type: 
  Country: None (occurrence: None)
  Receive Date: 20060131
  Receipt Date: 20060131
  Transmission Date: 20060701
  Serious: Yes (Life-Threatening)
  Sender: FDA-Public Use
  Company Number: None

PATIENT
  Age: 58 Year
  Sex: Male

DRUGS (4)
  1. MORPHINE [Suspect]
     Indication: PAIN
     Dosage: 4 MG Q2 H IV/IM
     Route: 042
     Dates: start: 20051019, end: 20051022
  2. VANCOMYCIN [Suspect]
     Indication: SEPSIS
     Dosage: 1 GRAM ONCE IVPB ONCE
     Route: 042
  3. FENTANYL [Concomitant]
  4. ATIVAN [Concomitant]

REACTIONS (3)
  - HYPOTENSION [None]
  - RASH [None]
  - RESPIRATORY ARREST [None]
